FAERS Safety Report 5091238-1 (Version None)
Quarter: 2006Q3

REPORT INFORMATION
  Report Type: 
  Country: None (occurrence: None)
  Receive Date: 20060825
  Receipt Date: 20060825
  Transmission Date: 20061208
  Serious: Yes (Hospitalization)
  Sender: FDA-Public Use
  Company Number: None

PATIENT
  Age: 42 Year
  Sex: Female
  Weight: 44.9061 kg

DRUGS (1)
  1. TEQUIN [Suspect]
     Indication: PNEUMONIA LEGIONELLA
     Dosage: 400 MG    1X A DAY     PO
     Route: 048
     Dates: start: 20051021, end: 20051031

REACTIONS (9)
  - ASTHENIA [None]
  - BLOOD POTASSIUM DECREASED [None]
  - DIPLEGIA [None]
  - FEELING ABNORMAL [None]
  - LOSS OF CONSCIOUSNESS [None]
  - MIGRAINE [None]
  - MUSCLE TWITCHING [None]
  - NERVOUS SYSTEM DISORDER [None]
  - SPEECH DISORDER [None]
